FAERS Safety Report 8980603 (Version 2)
Quarter: 2013Q1

REPORT INFORMATION
  Report Type: Spontaneous
  Country: FR (occurrence: FR)
  Receive Date: 20121221
  Receipt Date: 20130109
  Transmission Date: 20140127
  Serious: Yes (Other)
  Sender: FDA-Public Use
  Company Number: FR-JNJFOC-20121206400

PATIENT
  Age: 57 Year
  Sex: Male
  Weight: 83 kg

DRUGS (4)
  1. REMICADE [Suspect]
     Indication: COLITIS ULCERATIVE
     Route: 042
  2. REMICADE [Suspect]
     Indication: COLITIS ULCERATIVE
     Dosage: 9TH INFUSION
     Route: 042
     Dates: start: 20121123, end: 20121123
  3. HYDROCORTISONE [Concomitant]
     Indication: PREMEDICATION
     Route: 065
  4. PENTASA [Concomitant]
     Indication: COLITIS ULCERATIVE
     Route: 065

REACTIONS (2)
  - Skin disorder [Unknown]
  - Infusion related reaction [Recovered/Resolved]
